FAERS Safety Report 13512874 (Version 1)
Quarter: 2017Q2

REPORT INFORMATION
  Report Type: Spontaneous
  Country: US (occurrence: US)
  Receive Date: 20170504
  Receipt Date: 20170504
  Transmission Date: 20170830
  Serious: Yes (Hospitalization)
  Sender: FDA-Public Use
  Company Number: None

PATIENT
  Age: 33 Year
  Sex: Male
  Weight: 84.3 kg

DRUGS (7)
  1. HYDROMORPHONE [Suspect]
     Active Substance: HYDROMORPHONE
     Indication: PAIN
     Dosage: DOSE - 1 MG/ML PCA?FREQUENCY - PCA WITH BASAL?DATES OF USE - RECENT
     Route: 042
  2. ENOXAPARIN [Concomitant]
     Active Substance: ENOXAPARIN
  3. OFIRMEV [Concomitant]
     Active Substance: ACETAMINOPHEN
  4. ZOSYN [Concomitant]
     Active Substance: PIPERACILLIN SODIUM\TAZOBACTAM SODIUM
  5. APAP [Concomitant]
     Active Substance: ACETAMINOPHEN
  6. HYDREA [Concomitant]
     Active Substance: HYDROXYUREA
  7. METHADONE [Suspect]
     Active Substance: METHADONE HYDROCHLORIDE
     Indication: PAIN
     Dosage: DATES OF USE - CHRONIC
     Route: 048

REACTIONS (3)
  - Sedation [None]
  - Unresponsive to stimuli [None]
  - Pain [None]

NARRATIVE: CASE EVENT DATE: 20161124
